FAERS Safety Report 6502082-X (Version None)
Quarter: 2009Q4

REPORT INFORMATION
  Report Type: 
  Country: None (occurrence: None)
  Receive Date: 20091214
  Receipt Date: 20091202
  Transmission Date: 20100525
  Serious: Yes (Hospitalization, Other)
  Sender: FDA-Public Use
  Company Number: A-US2009-29453

PATIENT
  Age: 43 Year
  Sex: Female

DRUGS (9)
  1. TRACLEER [Suspect]
     Indication: PULMONARY ARTERIAL HYPERTENSION
     Dosage: 125 MG, BID, ORAL; 62.5 MG, BID, ORAL
     Route: 048
     Dates: start: 20081001, end: 20081101
  2. TRACLEER [Suspect]
     Indication: PULMONARY ARTERIAL HYPERTENSION
     Dosage: 125 MG, BID, ORAL; 62.5 MG, BID, ORAL
     Route: 048
     Dates: start: 20081101, end: 20090929
  3. DIOVAN [Concomitant]
  4. PREVACID [Concomitant]
  5. ADVAIR (SALMETEROL XINAFOATE, FLUTICASONE PROPIONATE) [Concomitant]
  6. MULTIVITAMIN [Concomitant]
  7. QUETIAPINE FUMARATE [Concomitant]
  8. NASONEX [Concomitant]
  9. SALBUTAMOL (SALBUTAMOL SULFATE) [Concomitant]

REACTIONS (10)
  - ANAEMIA [None]
  - ANAEMIA MACROCYTIC [None]
  - DECREASED ACTIVITY [None]
  - DYSPNOEA [None]
  - FATIGUE [None]
  - GASTROOESOPHAGEAL REFLUX DISEASE [None]
  - GENERAL PHYSICAL HEALTH DETERIORATION [None]
  - HAEMOGLOBIN DECREASED [None]
  - PLEURITIC PAIN [None]
  - RIGHT VENTRICULAR FAILURE [None]
